FAERS Safety Report 6233449-5 (Version None)
Quarter: 2009Q2

REPORT INFORMATION
  Report Type: 
  Country: None (occurrence: None)
  Receive Date: 20090617
  Receipt Date: 20090610
  Transmission Date: 20091009
  Serious: Yes (Hospitalization)
  Sender: FDA-Public Use
  Company Number: ES-ELI_LILLY_AND_COMPANY-ES200906002846

PATIENT
  Age: 74 Year
  Sex: Female

DRUGS (11)
  1. FORTEO [Suspect]
     Indication: OSTEOPOROSIS
     Dosage: 20 UG, UNK
     Route: 058
     Dates: start: 20081101, end: 20090603
  2. OXYNORM [Concomitant]
     Indication: PAIN
  3. LYRICA [Concomitant]
     Indication: PAIN
  4. DOLOTREN                           /00372302/ [Concomitant]
     Indication: PAIN
  5. MASDIL [Concomitant]
     Indication: ARRHYTHMIA
  6. ENALAPRIL MALEATE [Concomitant]
     Indication: HYPERTENSION
  7. SINGULAIR [Concomitant]
     Indication: ASTHMA
  8. DAFLON [Concomitant]
  9. SINTROM [Concomitant]
  10. AMERIDE [Concomitant]
     Indication: FLUID RETENTION
  11. SUTRIL [Concomitant]
     Indication: FLUID RETENTION

REACTIONS (4)
  - ANALGESIA [None]
  - ASTHENIA [None]
  - ASTHMA [None]
  - DYSSTASIA [None]
